FAERS Safety Report 8739489 (Version 2)
Quarter: 2012Q4

REPORT INFORMATION
  Report Type: 
  Country: US (occurrence: US)
  Receive Date: 20120823
  Receipt Date: 20121212
  Transmission Date: 20130627
  Serious: Yes (Death, Hospitalization)
  Sender: FDA-Public Use
  Company Number: US-ALEXION-A201201546

PATIENT
  Sex: Female

DRUGS (1)
  1. SOLIRIS 300MG [Suspect]
     Indication: HAEMOLYTIC URAEMIC SYNDROME
     Dosage: 900 mg, qw
     Route: 042
     Dates: start: 20120721, end: 20120731

REACTIONS (4)
  - Breast cancer metastatic [Fatal]
  - Renal failure [Fatal]
  - Hepatic failure [Fatal]
  - Microangiopathic haemolytic anaemia [Fatal]
